FAERS Safety Report 26055395 (Version 1)
Quarter: 2025Q4

REPORT INFORMATION
  Report Type: Spontaneous
  Country: CN (occurrence: CN)
  Receive Date: 20251117
  Receipt Date: 20251117
  Transmission Date: 20260117
  Serious: Yes (Other)
  Sender: PHARMACEUTICAL ASSOCIATES
  Company Number: CN-PAIPHARMA-2025-CN-000209

PATIENT
  Age: 2 Year
  Sex: Male

DRUGS (1)
  1. LACTULOSE [Suspect]
     Active Substance: LACTULOSE
     Indication: Bowel preparation
     Dosage: 20 ML ONCE
     Route: 048
     Dates: start: 20250429

REACTIONS (1)
  - Intussusception [Unknown]
